FAERS Safety Report 7900805 (Version 3)
Quarter: 2015Q2

REPORT INFORMATION
  Report Type: Spontaneous
  Country: US (occurrence: US)
  Receive Date: 20110415
  Receipt Date: 20150417
  Transmission Date: 20150821
  Serious: Yes (Death, Life-Threatening, Hospitalization, Congenital Anomaly)
  Sender: FDA-Public Use
  Company Number: US-ELI_LILLY_AND_COMPANY-US201104001517

PATIENT
  Sex: Female

DRUGS (6)
  1. PROZAC [Suspect]
     Active Substance: FLUOXETINE HYDROCHLORIDE
     Indication: MOOD SWINGS
     Dosage: 20 MG, BID
     Route: 064
     Dates: start: 19951201, end: 199905
  2. PROZAC [Suspect]
     Active Substance: FLUOXETINE HYDROCHLORIDE
     Indication: DEPRESSION
     Dosage: 20 MG, QD
     Route: 064
     Dates: start: 19930121
  3. PROZAC [Suspect]
     Active Substance: FLUOXETINE HYDROCHLORIDE
     Indication: PREMENSTRUAL SYNDROME
     Dosage: 10 MG, QD
     Route: 064
     Dates: start: 19990727
  4. PROZAC [Suspect]
     Active Substance: FLUOXETINE HYDROCHLORIDE
     Indication: MOOD SWINGS
     Dosage: 20 MG, BID
     Route: 064
     Dates: start: 19951201, end: 199905
  5. PROZAC [Suspect]
     Active Substance: FLUOXETINE HYDROCHLORIDE
     Indication: PREMENSTRUAL SYNDROME
     Dosage: 10 MG, QD
     Route: 064
     Dates: start: 19990727
  6. PROZAC [Suspect]
     Active Substance: FLUOXETINE HYDROCHLORIDE
     Indication: DEPRESSION
     Dosage: 20 MG, QD
     Route: 064
     Dates: start: 19930121

REACTIONS (9)
  - Tricuspid valve incompetence [Unknown]
  - Right ventricular dysfunction [Unknown]
  - Foetal exposure during pregnancy [Recovered/Resolved]
  - Congenital aortic anomaly [Unknown]
  - Atrial septal defect [Unknown]
  - Aortic valve atresia [Unknown]
  - Patent ductus arteriosus [Unknown]
  - Mitral valve atresia [Unknown]
  - Hypoplastic left heart syndrome [Fatal]
